FAERS Safety Report 6596592-7 (Version None)
Quarter: 2010Q1

REPORT INFORMATION
  Report Type: 
  Country: None (occurrence: None)
  Receive Date: 20100222
  Receipt Date: 20100222
  Transmission Date: 20100710
  Serious: No
  Sender: FDA-Public Use
  Company Number: None

PATIENT
  Sex: Female
  Weight: 79.8331 kg

DRUGS (2)
  1. PEGASYS [Suspect]
     Indication: HEPATITIS C
     Dosage: 180MCG/0.5 ML WEEKLY SQ
     Route: 058
     Dates: start: 20091111, end: 20100112
  2. RIBAPAK 600 MG SCHERING [Suspect]
     Indication: HEPATITIS C
     Dosage: 1200 MG DAILY PO
     Route: 048
     Dates: start: 20091111, end: 20100112

REACTIONS (7)
  - ASTHENIA [None]
  - CHEST PAIN [None]
  - HAEMOGLOBIN DECREASED [None]
  - HEPATIC ENZYME ABNORMAL [None]
  - TREATMENT NONCOMPLIANCE [None]
  - UNEVALUABLE EVENT [None]
  - WHITE BLOOD CELL COUNT DECREASED [None]
